FAERS Safety Report 24976796 (Version 3)
Quarter: 2025Q3

REPORT INFORMATION
  Report Type: Spontaneous
  Country: JP (occurrence: JP)
  Receive Date: 20250217
  Receipt Date: 20250805
  Transmission Date: 20251020
  Serious: Yes (Hospitalization)
  Sender: ROCHE
  Company Number: JP-CHUGAI-2025004490

PATIENT
  Age: 16 Year
  Sex: Female
  Weight: 16.3 kg

DRUGS (19)
  1. EVRYSDI [Suspect]
     Active Substance: RISDIPLAM
     Indication: Spinal muscular atrophy
     Dosage: 0.25 MILLIGRAM/KILOGRAM, QD
     Route: 048
     Dates: start: 20220803, end: 20250207
  2. CARBOCYSTEINE [Concomitant]
     Active Substance: CARBOCYSTEINE
     Route: 065
  3. AMBROXOL HYDROCHLORIDE [Concomitant]
     Active Substance: AMBROXOL HYDROCHLORIDE
     Route: 065
  4. HOKUNALIN [TULOBUTEROL HYDROCHLORIDE] [Concomitant]
     Route: 065
  5. FAMOTIDINE [Concomitant]
     Active Substance: FAMOTIDINE
     Route: 065
     Dates: end: 20240118
  6. PRANLUKAST [Concomitant]
     Active Substance: PRANLUKAST
     Route: 048
  7. CLARITHROMYCIN [Concomitant]
     Active Substance: CLARITHROMYCIN
     Route: 048
     Dates: start: 20180209
  8. LAC B [BIFIDOBACTERIUM LACTIS] [Concomitant]
     Route: 048
     Dates: start: 20180209
  9. OFLOXACIN [Concomitant]
     Active Substance: OFLOXACIN
     Route: 050
  10. RACOL [NUTRIENTS NOS] [Concomitant]
     Route: 048
     Dates: start: 20180209
  11. ENSURE [Concomitant]
     Active Substance: AMINO ACIDS\DEXTROSE\ELECTROLYTES NOS\SOYBEAN OIL\VITAMINS
     Route: 065
  12. HYALURONATE SODIUM [Concomitant]
     Active Substance: HYALURONATE SODIUM
     Route: 050
  13. RINDERON VG [Concomitant]
     Active Substance: BETAMETHASONE VALERATE\GENTAMICIN SULFATE
     Route: 003
     Dates: end: 20240313
  14. RINDERON VG [Concomitant]
     Active Substance: BETAMETHASONE VALERATE\GENTAMICIN SULFATE
     Route: 003
     Dates: end: 20240313
  15. DEXAMETHASONE DIPROPIONATE [Concomitant]
     Active Substance: DEXAMETHASONE DIPROPIONATE
     Route: 050
     Dates: end: 20231004
  16. GLUTAMINE\SODIUM GUALENATE [Concomitant]
     Active Substance: GLUTAMINE\SODIUM GUALENATE
     Route: 048
     Dates: start: 20180209
  17. MIYA-BM [Concomitant]
     Active Substance: CLOSTRIDIUM BUTYRICUM SPORES STRAIN M-55
     Route: 048
     Dates: start: 20180209
  18. ALLELOCK [Concomitant]
     Active Substance: OLOPATADINE HYDROCHLORIDE
     Route: 048
     Dates: start: 20180209
  19. SOLITA-T2 [Concomitant]
     Route: 048
     Dates: start: 20180209

REACTIONS (6)
  - Oxygen saturation decreased [Recovered/Resolved]
  - Dyspepsia [Recovering/Resolving]
  - Nausea [Recovering/Resolving]
  - Infection [Unknown]
  - Diarrhoea [Recovered/Resolved]
  - Helicobacter test positive [Recovered/Resolved]

NARRATIVE: CASE EVENT DATE: 20241217
